FAERS Safety Report 16792548 (Version 1)
Quarter: 2019Q3

REPORT INFORMATION
  Report Type: Report from Study
  Country: US (occurrence: US)
  Receive Date: 20190910
  Receipt Date: 20190910
  Transmission Date: 20191005
  Serious: Yes (Hospitalization)
  Sender: FDA-Public Use
  Company Number: US-ACTELION-A-US2017-155711

PATIENT
  Age: 53 Year
  Sex: Female

DRUGS (3)
  1. TRACLEER [Suspect]
     Active Substance: BOSENTAN
     Indication: CREST SYNDROME
     Dosage: 125 MG, UNK
     Route: 048
     Dates: start: 20170420
  2. PREDNISONE. [Concomitant]
     Active Substance: PREDNISONE
  3. PROTONIX [Concomitant]
     Active Substance: PANTOPRAZOLE SODIUM

REACTIONS (6)
  - Pericardial effusion [Unknown]
  - Dyspnoea [Unknown]
  - Therapy non-responder [Unknown]
  - Infection [Unknown]
  - Product dose omission [Unknown]
  - Wound [Not Recovered/Not Resolved]

NARRATIVE: CASE EVENT DATE: 20170617
